FAERS Safety Report 10946507 (Version 1)
Quarter: 2015Q1

REPORT INFORMATION
  Report Type: Spontaneous
  Country: CN (occurrence: CN)
  Receive Date: 20150323
  Receipt Date: 20150323
  Transmission Date: 20150721
  Serious: Yes (Other)
  Sender: FDA-Public Use
  Company Number: CN-BAYER-2015-049703

PATIENT
  Sex: Male

DRUGS (1)
  1. AVELOX [Suspect]
     Active Substance: MOXIFLOXACIN HYDROCHLORIDE
     Dosage: UNK
     Dates: start: 20150318

REACTIONS (3)
  - Dermatitis acneiform [None]
  - Measles [None]
  - Erythema [None]

NARRATIVE: CASE EVENT DATE: 20150318
